FAERS Safety Report 4429420-6 (Version None)
Quarter: 2004Q3

REPORT INFORMATION
  Report Type: 
  Country: None (occurrence: None)
  Receive Date: 20040819
  Receipt Date: 20040810
  Transmission Date: 20050211
  Serious: Yes (Life-Threatening, Hospitalization, Disabling)
  Sender: FDA-Public Use
  Company Number: US-MERCK-0408USA00876

PATIENT
  Sex: Female

DRUGS (6)
  1. ULTRACET [Concomitant]
     Route: 065
  2. ASPIRIN [Concomitant]
     Route: 065
  3. METOPROLOL-BC [Concomitant]
     Route: 065
  4. PROTONIX [Concomitant]
     Route: 065
  5. VIOXX [Suspect]
     Indication: PAIN
     Route: 048
     Dates: end: 20040101
  6. VIOXX [Suspect]
     Indication: OSTEOARTHRITIS
     Route: 048
     Dates: end: 20040101

REACTIONS (4)
  - ARTHRALGIA [None]
  - HAEMORRHAGE [None]
  - LOSS OF CONSCIOUSNESS [None]
  - MYOCARDIAL INFARCTION [None]
